FAERS Safety Report 10946134 (Version 1)
Quarter: 2015Q1

REPORT INFORMATION
  Report Type: Spontaneous
  Country: CH (occurrence: CH)
  Receive Date: 20150323
  Receipt Date: 20150323
  Transmission Date: 20150721
  Serious: Yes (Hospitalization, Other)
  Sender: FDA-Public Use
  Company Number: CH-009507513-1503CHE009716

PATIENT
  Age: 36 Year
  Sex: Male

DRUGS (2)
  1. REMERON SOLTAB [Suspect]
     Active Substance: MIRTAZAPINE
     Dosage: 29 DF, ONCE, FORMULATION: SOLTAB
     Route: 048
     Dates: start: 20141228, end: 20141228
  2. ALCOHOL. [Suspect]
     Active Substance: ALCOHOL
     Dosage: UNKNOWN, FORMULATION : BEVERAGE
     Route: 048
     Dates: start: 20141228, end: 20141228

REACTIONS (5)
  - Intentional overdose [Recovered/Resolved]
  - Electrocardiogram QRS complex prolonged [Recovered/Resolved]
  - Suicide attempt [Recovered/Resolved]
  - Somnolence [Recovered/Resolved]
  - Vomiting [Recovered/Resolved]

NARRATIVE: CASE EVENT DATE: 20141228
